FAERS Safety Report 6574431-8 (Version None)
Quarter: 2010Q1

REPORT INFORMATION
  Report Type: 
  Country: None (occurrence: None)
  Receive Date: 20100209
  Receipt Date: 20090911
  Transmission Date: 20100710
  Serious: No
  Sender: FDA-Public Use
  Company Number: A0806910A

PATIENT
  Age: 54 Year
  Sex: Female

DRUGS (3)
  1. PAXIL [Suspect]
     Dosage: 3TSP PER DAY
     Route: 048
     Dates: start: 20050101, end: 20090904
  2. PAXIL [Suspect]
     Dosage: 30MG PER DAY
     Route: 048
     Dates: start: 20090907
  3. AMBIEN [Concomitant]

REACTIONS (3)
  - DRUG INEFFECTIVE [None]
  - EXPIRED DRUG ADMINISTERED [None]
  - WITHDRAWAL SYNDROME [None]
